FAERS Safety Report 15669122 (Version 1)
Quarter: 2018Q4

REPORT INFORMATION
  Report Type: Spontaneous
  Country: IT (occurrence: IT)
  Receive Date: 20181129
  Receipt Date: 20181129
  Transmission Date: 20190205
  Serious: Yes (Life-Threatening)
  Sender: FDA-Public Use
  Company Number: IT-ACCORD-094253

PATIENT
  Age: 85 Year
  Sex: Male

DRUGS (12)
  1. SOLOSA [Concomitant]
     Active Substance: GLIMEPIRIDE
  2. SIMVASTATIN. [Suspect]
     Active Substance: SIMVASTATIN
     Indication: MYOCARDIAL ISCHAEMIA
     Route: 048
     Dates: start: 20171021, end: 20171111
  3. ALLOPURINOL. [Concomitant]
     Active Substance: ALLOPURINOL
  4. METOPROLOL. [Concomitant]
     Active Substance: METOPROLOL
     Dates: start: 20171021, end: 20171111
  5. GANFORT [Concomitant]
     Active Substance: BIMATOPROST\TIMOLOL
  6. TRIATEC (CODEINE PHOSPHATE/PARACETAMOL) [Concomitant]
     Active Substance: ACETAMINOPHEN\CODEINE PHOSPHATE
     Dates: start: 20171021, end: 20171111
  7. BICALUTAMIDE. [Concomitant]
     Active Substance: BICALUTAMIDE
  8. LANSOX [Concomitant]
     Active Substance: LANSOPRAZOLE
     Dates: start: 20171021, end: 20171111
  9. XATRAL [Concomitant]
     Active Substance: ALFUZOSIN
  10. ZYLLT [Concomitant]
     Active Substance: CLOPIDOGREL BISULFATE
     Dates: start: 20171021, end: 20171111
  11. CARDIRENE [Concomitant]
     Active Substance: ASPIRIN DL-LYSINE
     Dates: start: 20171021, end: 20171111
  12. CARVASIN [Concomitant]
     Active Substance: ISOSORBIDE DINITRATE

REACTIONS (3)
  - Muscle injury [Unknown]
  - Myalgia [Unknown]
  - Rhabdomyolysis [Unknown]

NARRATIVE: CASE EVENT DATE: 20171111
